FAERS Safety Report 6055000-5 (Version None)
Quarter: 2009Q1

REPORT INFORMATION
  Report Type: 
  Country: None (occurrence: None)
  Receive Date: 20090128
  Receipt Date: 20090115
  Transmission Date: 20090719
  Serious: Yes (Hospitalization)
  Sender: FDA-Public Use
  Company Number: FR-SANOFI-SYNTHELABO-A02200900085

PATIENT
  Sex: Female

DRUGS (5)
  1. STILNOX [Concomitant]
     Indication: DRUG USE FOR UNKNOWN INDICATION
     Route: 048
  2. NEXIUM [Suspect]
     Indication: GASTROOESOPHAGEAL REFLUX DISEASE
     Route: 048
     Dates: start: 20050101, end: 20081230
  3. PLAQUENIL [Suspect]
     Indication: Q FEVER
     Route: 048
     Dates: start: 20071001
  4. VIBRAMYCIN [Suspect]
     Indication: Q FEVER
     Route: 048
     Dates: start: 20071001
  5. PREVISCAN [Concomitant]
     Indication: DRUG USE FOR UNKNOWN INDICATION
     Dosage: 1 TABLET THE EVEN DAYS AND 1/4 TABLET THE ODD DAYS
     Route: 048

REACTIONS (2)
  - PARAESTHESIA [None]
  - PERIPHERAL SENSORY NEUROPATHY [None]
